FAERS Safety Report 15559770 (Version 2)
Quarter: 2018Q4

REPORT INFORMATION
  Report Type: Spontaneous
  Country: US (occurrence: US)
  Receive Date: 20181029
  Receipt Date: 20181213
  Transmission Date: 20190205
  Serious: Yes (Other)
  Sender: FDA-Public Use
  Company Number: US-COOPERSURGICAL, INC.-US-2018CPS033432

PATIENT

DRUGS (1)
  1. PARAGARD T 380A [Suspect]
     Active Substance: COPPER
     Indication: CONTRACEPTION
     Dosage: UNK
     Route: 015
     Dates: start: 20161118, end: 20181005

REACTIONS (19)
  - Muscular weakness [Not Recovered/Not Resolved]
  - Device expulsion [Recovered/Resolved]
  - Syncope [Recovered/Resolved]
  - Pregnancy with contraceptive device [Recovered/Resolved]
  - Malaise [Unknown]
  - Depressed mood [Unknown]
  - Drug ineffective [Recovered/Resolved]
  - Urinary tract infection [Unknown]
  - Ovarian cyst [Unknown]
  - Muscle spasms [Not Recovered/Not Resolved]
  - Anxiety [Unknown]
  - Embedded device [Recovered/Resolved]
  - Nervousness [Unknown]
  - Crying [Unknown]
  - Pain [Unknown]
  - Abortion spontaneous [Recovered/Resolved]
  - Haemorrhage [Unknown]
  - Nausea [Unknown]
  - Abdominal pain [Unknown]

NARRATIVE: CASE EVENT DATE: 2018
